FAERS Safety Report 8110803-8 (Version None)
Quarter: 2012Q1

REPORT INFORMATION
  Report Type: 
  Country: None (occurrence: None)
  Receive Date: 20120203
  Receipt Date: 20120123
  Transmission Date: 20120608
  Serious: Yes (Hospitalization, Other)
  Sender: FDA-Public Use
  Company Number: JP-JNJFOC-20110706246

PATIENT
  Sex: Male
  Weight: 58 kg

DRUGS (7)
  1. ELENTAL [Suspect]
     Indication: CROHN'S DISEASE
     Dosage: DOSE FOR TREATMENT 80 GM
     Route: 048
  2. SUCRALFATE [Suspect]
     Indication: GASTRIC ULCER
     Dosage: DOSE FOR TREATMENT 1 GM
     Route: 048
  3. REMICADE [Suspect]
     Dosage: 5TH DOSE
     Route: 042
     Dates: start: 20090427
  4. ROXATIDINE ACETATE HCL [Suspect]
     Indication: GASTRIC ULCER
     Dosage: DOSE FOR TREATMENT 75 MG
     Route: 048
  5. IMURAN [Concomitant]
     Route: 048
  6. REMICADE [Suspect]
     Indication: CROHN'S DISEASE
     Route: 042
     Dates: start: 20081125
  7. PENTASA [Suspect]
     Indication: CROHN'S DISEASE
     Route: 048

REACTIONS (3)
  - ATRIAL FIBRILLATION [None]
  - CEREBRAL INFARCTION [None]
  - APHASIA [None]
